FAERS Safety Report 17867687 (Version 2)
Quarter: 2020Q3

REPORT INFORMATION
  Report Type: Report from Study
  Country: None (occurrence: US)
  Receive Date: 20200605
  Receipt Date: 20200820
  Transmission Date: 20201103
  Serious: Yes (Hospitalization)
  Sender: FDA-Public Use
  Company Number: US-ABBVIE-20P-163-3424182-00

PATIENT
  Age: 10 Year
  Sex: Male
  Weight: 28.1 kg

DRUGS (10)
  1. VENETOCLAX. [Suspect]
     Active Substance: VENETOCLAX
     Indication: RECURRENT CANCER
     Route: 048
     Dates: start: 20200519, end: 20200519
  2. VINCRISTINE [Suspect]
     Active Substance: VINCRISTINE
     Indication: RECURRENT CANCER
  3. PEGASPARAGINASE [Suspect]
     Active Substance: PEGASPARGASE
     Indication: RECURRENT CANCER
  4. ONDANSETRON [Concomitant]
     Active Substance: ONDANSETRON
     Indication: NAUSEA
     Route: 042
     Dates: start: 20200518
  5. PEGASPARAGINASE [Suspect]
     Active Substance: PEGASPARGASE
     Indication: RECURRENT CANCER
     Route: 042
     Dates: start: 20200522
  6. VINCRISTINE [Suspect]
     Active Substance: VINCRISTINE
     Indication: RECURRENT CANCER
     Route: 042
     Dates: start: 20200521
  7. ONDANSETRON [Concomitant]
     Active Substance: ONDANSETRON
     Indication: PROPHYLAXIS OF NAUSEA AND VOMITING
     Route: 042
     Dates: start: 20200518, end: 20200522
  8. VENETOCLAX. [Suspect]
     Active Substance: VENETOCLAX
     Route: 048
     Dates: start: 20200520
  9. VENETOCLAX. [Suspect]
     Active Substance: VENETOCLAX
     Indication: RECURRENT CANCER
     Route: 048
     Dates: start: 20200518, end: 20200518
  10. DEXAMETHASONE. [Suspect]
     Active Substance: DEXAMETHASONE
     Indication: RECURRENT CANCER
     Route: 048
     Dates: start: 20200521

REACTIONS (1)
  - Nausea [Not Recovered/Not Resolved]

NARRATIVE: CASE EVENT DATE: 20200525
